FAERS Safety Report 5911964-9 (Version None)
Quarter: 2008Q4

REPORT INFORMATION
  Report Type: 
  Country: None (occurrence: None)
  Receive Date: 20081008
  Receipt Date: 20080930
  Transmission Date: 20090506
  Serious: Yes (Other)
  Sender: FDA-Public Use
  Company Number: PHHY2008JP21664

PATIENT

DRUGS (5)
  1. CYCLOSPORINE [Suspect]
     Indication: GLOMERULONEPHRITIS MEMBRANOUS
     Dosage: 150 MG/DAY
     Route: 065
  2. CYCLOSPORINE [Suspect]
     Dosage: 75 MG/DAY
     Route: 065
     Dates: end: 20070801
  3. CYCLOSPORINE [Suspect]
     Dosage: 25 MG/DAY
     Route: 065
     Dates: start: 20070926
  4. PREDNISOLONE [Concomitant]
     Indication: GLOMERULONEPHRITIS MEMBRANOUS
     Dosage: 15 MG/DAY
     Dates: start: 20070926
  5. PREDNISOLONE [Concomitant]
     Dosage: 10 MG/DAY

REACTIONS (4)
  - CREATININE RENAL CLEARANCE DECREASED [None]
  - DIABETES MELLITUS [None]
  - PROTEIN URINE PRESENT [None]
  - RENAL IMPAIRMENT [None]
